FAERS Safety Report 5101426-3 (Version None)
Quarter: 2006Q3

REPORT INFORMATION
  Report Type: 
  Country: None (occurrence: None)
  Receive Date: 20060911
  Receipt Date: 20060830
  Transmission Date: 20061208
  Serious: Yes (Hospitalization)
  Sender: FDA-Public Use
  Company Number: FR-GLAXOSMITHKLINE-B0436454A

PATIENT
  Age: 67 Year
  Sex: Female
  Weight: 70 kg

DRUGS (8)
  1. FRAXIPARINE [Suspect]
     Indication: CEREBROVASCULAR ACCIDENT PROPHYLAXIS
     Dosage: .3ML PER DAY
     Route: 058
     Dates: start: 20060726, end: 20060815
  2. DEROXAT [Suspect]
     Dosage: 20MG PER DAY
     Route: 048
     Dates: start: 20060801
  3. NEXIUM [Concomitant]
     Dosage: 40MG AT NIGHT
     Route: 048
  4. TARDYFERON [Concomitant]
     Dosage: 160MG PER DAY
     Route: 048
  5. RIVOTRIL [Concomitant]
     Indication: NEURALGIA
     Dosage: 5DROP AT NIGHT
     Route: 048
  6. DAFALGAN [Concomitant]
     Dosage: 1000MG THREE TIMES PER DAY
     Route: 048
  7. PRIMPERAN TAB [Concomitant]
     Dosage: 3SP THREE TIMES PER DAY
     Route: 048
  8. DIFFU K [Concomitant]
     Dosage: 3UNIT PER DAY

REACTIONS (8)
  - APALLIC SYNDROME [None]
  - CEREBRAL HAEMATOMA [None]
  - CEREBRAL HAEMORRHAGE [None]
  - DRUG INTERACTION [None]
  - GAZE PALSY [None]
  - HEMIPLEGIA [None]
  - PYREXIA [None]
  - SENSORY LOSS [None]
